FAERS Safety Report 6838826-7 (Version None)
Quarter: 2010Q3

REPORT INFORMATION
  Report Type: 
  Country: None (occurrence: None)
  Receive Date: 20100713
  Receipt Date: 20070818
  Transmission Date: 20110219
  Serious: No
  Sender: FDA-Public Use
  Company Number: US-PFIZER INC-2007042926

PATIENT
  Sex: Female
  Weight: 67.6 kg

DRUGS (8)
  1. CHANTIX [Suspect]
     Indication: SMOKING CESSATION THERAPY
     Dates: start: 20070526
  2. SYNTHROID [Concomitant]
  3. HYDROCODONE BITARTRATE [Concomitant]
  4. AMOXICILLIN [Concomitant]
  5. HYDROCHLOROTHIAZIDE [Concomitant]
  6. XOPENEX [Concomitant]
  7. MOTRIN [Concomitant]
  8. WELLBUTRIN [Concomitant]

REACTIONS (4)
  - MUSCLE SPASMS [None]
  - MUSCLE STRAIN [None]
  - MUSCLE TIGHTNESS [None]
  - PAIN [None]
